FAERS Safety Report 7375975-1 (Version None)
Quarter: 2011Q1

REPORT INFORMATION
  Report Type: 
  Country: None (occurrence: None)
  Receive Date: 20110325
  Receipt Date: 20110314
  Transmission Date: 20110831
  Serious: Yes (Death, Hospitalization, Other)
  Sender: FDA-Public Use
  Company Number: US-BAXTER-2011BH004935

PATIENT
  Age: 77 Year
  Sex: Male

DRUGS (1)
  1. DIANEAL [Suspect]
     Indication: PERITONEAL DIALYSIS
     Route: 033
     Dates: end: 20110228

REACTIONS (4)
  - PERITONITIS BACTERIAL [None]
  - MYOCARDIAL INFARCTION [None]
  - DIVERTICULITIS [None]
  - DYSPNOEA [None]
